FAERS Safety Report 25789335 (Version 1)
Quarter: 2025Q3

REPORT INFORMATION
  Report Type: Spontaneous
  Country: US (occurrence: US)
  Receive Date: 20250911
  Receipt Date: 20250911
  Transmission Date: 20251020
  Serious: Yes (Other)
  Sender: Haleon PLC
  Company Number: US-HALEON-2182023

PATIENT

DRUGS (1)
  1. ROBITUSSIN MAXIMUM STRENGTH COUGH PLUS CHEST CONGESTION DM [Suspect]
     Active Substance: DEXTROMETHORPHAN HYDROBROMIDE\GUAIFENESIN
     Indication: Product used for unknown indication

REACTIONS (5)
  - Pulmonary congestion [Unknown]
  - Pharyngitis streptococcal [Unknown]
  - Condition aggravated [Unknown]
  - Dyspnoea [Unknown]
  - Influenza [Unknown]
